FAERS Safety Report 7336982-8 (Version None)
Quarter: 2011Q1

REPORT INFORMATION
  Report Type: 
  Country: None (occurrence: None)
  Receive Date: 20110308
  Receipt Date: 20110303
  Transmission Date: 20110831
  Serious: Yes (Death, Hospitalization)
  Sender: FDA-Public Use
  Company Number: ES-TEVA-264191ISR

PATIENT
  Age: 52 Year
  Sex: Male

DRUGS (3)
  1. CLARITHROMYCIN [Suspect]
     Indication: TOOTH ABSCESS
  2. COLCHICINE [Interacting]
     Indication: HYPERURICAEMIA
  3. COLCHICINE [Interacting]
     Indication: GOUT

REACTIONS (3)
  - MULTI-ORGAN FAILURE [None]
  - TOXICITY TO VARIOUS AGENTS [None]
  - DRUG INTERACTION [None]
